FAERS Safety Report 14250489 (Version 1)
Quarter: 2017Q4

REPORT INFORMATION
  Report Type: Other
  Country: JP (occurrence: JP)
  Receive Date: 20171205
  Receipt Date: 20171205
  Transmission Date: 20180321
  Serious: No
  Sender: FDA-Public Use
  Company Number: JP-LUPIN PHARMACEUTICALS INC.-2017-04643

PATIENT
  Age: 6 Decade
  Sex: Female

DRUGS (2)
  1. PRAVASTATIN NA 5MG TABLET [Suspect]
     Active Substance: PRAVASTATIN SODIUM
     Indication: HYPERLIPIDAEMIA
     Dosage: 1 DF, QD
     Route: 048
     Dates: start: 20100223
  2. PRAVASTATIN NA 5MG TABLET [Suspect]
     Active Substance: PRAVASTATIN SODIUM
     Dosage: 2 DF, BID
     Route: 048
     Dates: start: 20100309, end: 201101

REACTIONS (1)
  - Osteoarthritis [Recovered/Resolved]

NARRATIVE: CASE EVENT DATE: 201101
